FAERS Safety Report 11460638 (Version 2)
Quarter: 2015Q3

REPORT INFORMATION
  Report Type: Spontaneous
  Country: JP (occurrence: JP)
  Receive Date: 20150904
  Receipt Date: 20150914
  Transmission Date: 20151125
  Serious: Yes (Death, Other)
  Sender: FDA-Public Use
  Company Number: PHHY2015JP105848

PATIENT
  Sex: Female
  Weight: 2.6 kg

DRUGS (5)
  1. ETOPOSIDE. [Suspect]
     Active Substance: ETOPOSIDE
     Indication: LYMPHOHISTIOCYTOSIS
     Dosage: 100 MG/M2, QW2
     Route: 042
  2. GAMMA GLOBULIN [Concomitant]
     Active Substance: IMMUNE GLOBULIN NOS
     Indication: PRODUCT USED FOR UNKNOWN INDICATION
     Route: 065
  3. DEXAMETHASONE. [Suspect]
     Active Substance: DEXAMETHASONE
     Indication: LYMPHOHISTIOCYTOSIS
     Dosage: 0.5 MG/KG, QD
     Route: 042
  4. SANDIMMUN INFUSION [Suspect]
     Active Substance: CYCLOSPORINE
     Indication: HISTIOCYTOSIS HAEMATOPHAGIC
  5. SANDIMMUN INFUSION [Suspect]
     Active Substance: CYCLOSPORINE
     Indication: LYMPHOHISTIOCYTOSIS
     Dosage: 2 MG/KG, QD
     Route: 041

REACTIONS (6)
  - Pseudomonas infection [Fatal]
  - Thrombocytopenia [Unknown]
  - Bacteraemia [Fatal]
  - General physical health deterioration [Unknown]
  - Product use issue [Unknown]
  - Leukopenia [Unknown]
